FAERS Safety Report 7313666-3 (Version None)
Quarter: 2011Q1

REPORT INFORMATION
  Report Type: 
  Country: None (occurrence: None)
  Receive Date: 20110225
  Receipt Date: 20110222
  Transmission Date: 20110831
  Serious: Yes (Other)
  Sender: FDA-Public Use
  Company Number: JP-PFIZER INC-2011015899

PATIENT
  Age: 41 Year
  Sex: Female

DRUGS (2)
  1. RIVOTRIL [Concomitant]
     Dosage: UNK
  2. CABASER [Suspect]
     Indication: RESTLESS LEGS SYNDROME
     Dosage: 0.5 MG, 1X/DAY
     Route: 048
     Dates: start: 20100601

REACTIONS (1)
  - OVARIAN FAILURE [None]
